FAERS Safety Report 12738118 (Version 2)
Quarter: 2017Q2

REPORT INFORMATION
  Report Type: Spontaneous
  Country: US (occurrence: US)
  Receive Date: 20160912
  Receipt Date: 20170517
  Transmission Date: 20170830
  Serious: No
  Sender: FDA-Public Use
  Company Number: US-SA-2016SA157716

PATIENT
  Age: 66 Year
  Sex: Female
  Weight: 74.84 kg

DRUGS (14)
  1. SOLOSTAR [Concomitant]
     Active Substance: DEVICE
     Dates: start: 2016
  2. SOLOSTAR [Concomitant]
     Active Substance: DEVICE
     Dates: start: 2016
  3. TOUJEO [Suspect]
     Active Substance: INSULIN GLARGINE
     Indication: TYPE 2 DIABETES MELLITUS
     Dosage: DOSE:11 UNIT(S)
     Route: 065
     Dates: start: 2016
  4. MOBIC [Concomitant]
     Active Substance: MELOXICAM
  5. ASPIRIN. [Concomitant]
     Active Substance: ASPIRIN
  6. LISINOPRIL. [Concomitant]
     Active Substance: LISINOPRIL
     Indication: BLOOD PRESSURE MEASUREMENT
  7. TOUJEO [Suspect]
     Active Substance: INSULIN GLARGINE
     Indication: TYPE 2 DIABETES MELLITUS
     Dosage: DOSE:30 UNIT(S)
     Route: 065
     Dates: start: 2016
  8. HYDROCHLOROTHIAZIDE/TRIAMTERENE [Concomitant]
  9. TRIAMTERENE. [Concomitant]
     Active Substance: TRIAMTERENE
     Indication: BLOOD PRESSURE MEASUREMENT
     Dosage: 37.5-25MG
  10. TOUJEO [Suspect]
     Active Substance: INSULIN GLARGINE
     Indication: TYPE 2 DIABETES MELLITUS
     Dosage: DOSE:10 UNIT(S)
     Route: 065
     Dates: start: 20160823
  11. SOLOSTAR [Concomitant]
     Active Substance: DEVICE
     Dates: start: 20160823
  12. MELOXICAM. [Concomitant]
     Active Substance: MELOXICAM
     Indication: ARTHRALGIA
     Dates: start: 2016
  13. LEVOTHYROXINE. [Concomitant]
     Active Substance: LEVOTHYROXINE
     Indication: THYROID DISORDER
  14. LANTUS [Concomitant]
     Active Substance: INSULIN GLARGINE
     Dosage: DOSE:30 UNIT(S)
     Dates: end: 20160823

REACTIONS (1)
  - Hyperglycaemia [Recovered/Resolved]

NARRATIVE: CASE EVENT DATE: 20160823
